FAERS Safety Report 9229927 (Version 1)
Quarter: 2013Q2

REPORT INFORMATION
  Report Type: Spontaneous
  Country: US (occurrence: US)
  Receive Date: 20130415
  Receipt Date: 20130415
  Transmission Date: 20140414
  Serious: No
  Sender: FDA-Public Use
  Company Number: US-009507513-1303USA014358

PATIENT
  Sex: Female

DRUGS (1)
  1. NEXPLANON [Suspect]
     Indication: CONTRACEPTION
     Dosage: FREQUENCY: 1 YEAR
     Route: 059
     Dates: start: 20120404

REACTIONS (4)
  - Depression [Unknown]
  - Anxiety [Unknown]
  - Insomnia [Unknown]
  - Menstrual disorder [Unknown]
